FAERS Safety Report 18612250 (Version 1)
Quarter: 2020Q4

REPORT INFORMATION
  Report Type: Spontaneous
  Country: IT (occurrence: IT)
  Receive Date: 20201214
  Receipt Date: 20201214
  Transmission Date: 20210114
  Serious: Yes (Death, Life-Threatening, Other)
  Sender: FDA-Public Use
  Company Number: IT-AMGEN-ITASP2020200957

PATIENT

DRUGS (11)
  1. MAGNESIUM SULFATE. [Concomitant]
     Active Substance: MAGNESIUM SULFATE
     Dosage: 15 MILLIEQUIVALENT
  2. EPIDOXORUBICINA [Concomitant]
     Active Substance: EPIRUBICIN
     Indication: GASTRIC CANCER
     Dosage: 35 MILLIGRAM/SQ. METER
     Route: 040
  3. SODIUM CHLORIDE. [Concomitant]
     Active Substance: SODIUM CHLORIDE
     Dosage: 1500 MILLILITER
  4. 5-FLUOROURACIL [FLUOROURACIL] [Concomitant]
     Active Substance: FLUOROURACIL
     Indication: GASTRIC CANCER
     Dosage: 500 MILLIGRAM/SQ. METER IN 100 ML OF NORMAL SALINE SOLUTION
  5. POTASSIUM CHLORIDE. [Concomitant]
     Active Substance: POTASSIUM CHLORIDE
     Dosage: 20 MILLIEQUIVALENT
  6. GLUTATHIONE [Concomitant]
     Active Substance: GLUTATHIONE
     Indication: NEUROTOXICITY
     Dosage: 1.5 GRAM PER SQUARE METRE IN 100 ML OF NORMAL SALINE
  7. FILGRASTIM [Suspect]
     Active Substance: FILGRASTIM
     Indication: GASTRIC CANCER
     Dosage: 5 MICROGRAM/KILOGRAM
     Route: 058
  8. DEXAMETHASONE. [Concomitant]
     Active Substance: DEXAMETHASONE
     Indication: ANTIEMETIC SUPPORTIVE CARE
     Dosage: 20 MILLIGRAM IN 50 ML SALINE
     Route: 042
  9. ONDANSETRON [Concomitant]
     Active Substance: ONDANSETRON
     Indication: ANTIEMETIC SUPPORTIVE CARE
     Dosage: 8 MILLIGRAM IN 50 ML SALINE
     Route: 042
  10. CISPLATIN. [Concomitant]
     Active Substance: CISPLATIN
     Indication: GASTRIC CANCER
     Dosage: 40 MILLIGRAM/SQ. METER IN 250 ML OF NORMAL SALINE SOLUTION
  11. LEUCOVORIN [FOLINIC ACID] [Concomitant]
     Active Substance: LEUCOVORIN
     Indication: GASTRIC CANCER
     Dosage: 250 MILLIGRAM/SQ. METER DILUTED IN 250 ML OF NORMAL SALINE SOLUTION

REACTIONS (10)
  - Leukopenia [Unknown]
  - Death [Fatal]
  - Neurotoxicity [Unknown]
  - Gastric cancer recurrent [Unknown]
  - Nausea [Unknown]
  - Anaemia [Unknown]
  - Mucosal inflammation [Unknown]
  - Diarrhoea [Unknown]
  - Thrombocytopenia [Unknown]
  - Vomiting [Unknown]
